FAERS Safety Report 5126739-0 (Version None)
Quarter: 2006Q4

REPORT INFORMATION
  Report Type: 
  Country: None (occurrence: None)
  Receive Date: 20061012
  Receipt Date: 20061012
  Transmission Date: 20070319
  Serious: No
  Sender: FDA-Public Use
  Company Number: None

PATIENT
  Age: 72 Year
  Sex: Female
  Weight: 86.1834 kg

DRUGS (1)
  1. OPTIRAY 350 [Suspect]
     Dosage: 100CC   4.0CC/SEC  (R)AC
     Route: 013

REACTIONS (5)
  - DYSPHAGIA [None]
  - EYE SWELLING [None]
  - OCULAR HYPERAEMIA [None]
  - SNEEZING [None]
  - URTICARIA [None]
